FAERS Safety Report 4929535-X (Version None)
Quarter: 2006Q1

REPORT INFORMATION
  Report Type: 
  Country: None (occurrence: None)
  Receive Date: 20060224
  Receipt Date: 20060214
  Transmission Date: 20060701
  Serious: Yes (Hospitalization)
  Sender: FDA-Public Use
  Company Number: 2006020029

PATIENT
  Age: 44 Year
  Sex: Male

DRUGS (9)
  1. DORAL [Suspect]
     Indication: INSOMNIA
     Dosage: 30 MG
     Dates: start: 20060107
  2. LEVOTOMIN (LEVOMEPROMAZINE MALEATE) [Suspect]
     Indication: INSOMNIA
     Dosage: 50 MG
     Dates: start: 20051219, end: 20051227
  3. PEROSPIRONE [Suspect]
     Indication: INSOMNIA
     Dosage: 12 MG
     Dates: start: 20060107, end: 20060123
  4. CHLORPROMAZINE [Concomitant]
     Indication: INSOMNIA
     Dosage: 150 MG
     Dates: start: 20051228, end: 20060106
  5. TETRAMIDE (MIANSERIN HYDROCHLORIDE) [Concomitant]
  6. DIAZEPAM [Concomitant]
  7. NITRAZEPAM [Concomitant]
  8. ROHYPNOL (FLUNITRAZEPAM) [Concomitant]
  9. SENNOSIDE (SENNOSIDE A) [Concomitant]

REACTIONS (2)
  - ABDOMINAL PAIN [None]
  - DIABETES MELLITUS [None]
